FAERS Safety Report 5030773-9 (Version None)
Quarter: 2006Q2

REPORT INFORMATION
  Report Type: 
  Country: None (occurrence: None)
  Receive Date: 20060621
  Receipt Date: 20060508
  Transmission Date: 20061013
  Serious: Yes (Other)
  Sender: FDA-Public Use
  Company Number: US-ROCHE-447345

PATIENT
  Age: 61 Year
  Sex: Female
  Weight: 72.6 kg

DRUGS (2)
  1. BONIVA [Suspect]
     Indication: OSTEOPOROSIS
     Route: 048
     Dates: start: 20060315, end: 20060515
  2. INSULIN [Concomitant]

REACTIONS (2)
  - ABDOMINAL PAIN UPPER [None]
  - EPISTAXIS [None]
